FAERS Safety Report 20800846 (Version 4)
Quarter: 2022Q2

REPORT INFORMATION
  Report Type: Report from Study
  Country: SE (occurrence: None)
  Receive Date: 20220509
  Receipt Date: 20220603
  Transmission Date: 20220721
  Serious: Yes (Hospitalization)
  Sender: FDA-Public Use
  Company Number: SE-ROCHE-3087517

PATIENT
  Age: 70 Year
  Sex: Male
  Weight: 76 kg

DRUGS (3)
  1. ATEZOLIZUMAB [Suspect]
     Active Substance: ATEZOLIZUMAB
     Indication: Malignant melanoma
     Route: 042
     Dates: start: 20220324, end: 20220324
  2. TARGINIQ ER [Concomitant]
     Active Substance: NALOXONE HYDROCHLORIDE\OXYCODONE HYDROCHLORIDE
     Dates: start: 20220322
  3. ACETAMINOPHEN [Concomitant]
     Active Substance: ACETAMINOPHEN
     Dates: start: 20220322

REACTIONS (1)
  - Infected neoplasm [Recovered/Resolved]

NARRATIVE: CASE EVENT DATE: 20220329
